FAERS Safety Report 6761745-1 (Version None)
Quarter: 2010Q2

REPORT INFORMATION
  Report Type: 
  Country: None (occurrence: None)
  Receive Date: 20100609
  Receipt Date: 20100601
  Transmission Date: 20101027
  Serious: Yes (Hospitalization)
  Sender: FDA-Public Use
  Company Number: SE-BAXTER-2010BH013609

PATIENT
  Sex: Female
  Weight: 40 kg

DRUGS (7)
  1. GAMMAGARD LIQUID [Suspect]
     Indication: PRURITUS
     Route: 042
     Dates: start: 20100511
  2. GAMMAGARD LIQUID [Suspect]
     Indication: DERMATOMYOSITIS
     Route: 042
     Dates: start: 20100511
  3. GAMMAGARD LIQUID [Suspect]
     Indication: OFF LABEL USE
     Route: 042
     Dates: start: 20100511
  4. CORTICOSTEROID NOS [Suspect]
     Indication: DERMATOMYOSITIS
     Route: 065
  5. METHOTREXATE [Suspect]
     Indication: DERMATOMYOSITIS
     Route: 065
  6. METHOTREXATE [Concomitant]
  7. CORTICOSTEROIDS [Concomitant]

REACTIONS (3)
  - HEADACHE [None]
  - HYPOTENSION [None]
  - NAUSEA [None]
